FAERS Safety Report 13653234 (Version 1)
Quarter: 2017Q2

REPORT INFORMATION
  Report Type: Spontaneous
  Country: US (occurrence: US)
  Receive Date: 20170614
  Receipt Date: 20170614
  Transmission Date: 20170830
  Serious: Yes (Other)
  Sender: FDA-Public Use
  Company Number: US-ROCHE-1406516

PATIENT
  Sex: Female

DRUGS (1)
  1. XELODA [Suspect]
     Active Substance: CAPECITABINE
     Indication: NEOPLASM MALIGNANT
     Dosage: 14 DAYS ON, 7 DAYS OFF
     Route: 048
     Dates: start: 20140430, end: 20140702

REACTIONS (8)
  - Nausea [Unknown]
  - Nail discolouration [Unknown]
  - Pain in extremity [Unknown]
  - Peripheral swelling [Unknown]
  - Dry mouth [Unknown]
  - Dry eye [Unknown]
  - Skin exfoliation [Unknown]
  - Skin fissures [Unknown]
